FAERS Safety Report 20460866 (Version 1)
Quarter: 2022Q1

REPORT INFORMATION
  Report Type: Spontaneous
  Country: US (occurrence: US)
  Receive Date: 20220211
  Receipt Date: 20220211
  Transmission Date: 20220423
  Serious: No
  Sender: FDA-Public Use
  Company Number: US-UNITED THERAPEUTICS-UNT-2022-003143

PATIENT
  Age: 65 Year
  Sex: Female
  Weight: 56.689 kg

DRUGS (3)
  1. REMODULIN [Suspect]
     Active Substance: TREPROSTINIL
     Indication: Pulmonary arterial hypertension
     Dosage: UNK UNK, CONTINUING
     Route: 058
     Dates: start: 20210204
  2. REMODULIN [Suspect]
     Active Substance: TREPROSTINIL
     Dosage: 0.017 ?G/KG, CONTINUING
     Route: 058
  3. OPSUMIT [Concomitant]
     Active Substance: MACITENTAN
     Indication: Product used for unknown indication
     Dosage: UNK
     Route: 065

REACTIONS (3)
  - Chills [Unknown]
  - Nervousness [Unknown]
  - Product administration interrupted [Recovered/Resolved]

NARRATIVE: CASE EVENT DATE: 20220208
